FAERS Safety Report 4679903-9 (Version None)
Quarter: 2005Q2

REPORT INFORMATION
  Report Type: 
  Country: None (occurrence: None)
  Receive Date: 20050602
  Receipt Date: 20050524
  Transmission Date: 20051028
  Serious: Yes (Hospitalization)
  Sender: FDA-Public Use
  Company Number: US-GLAXOSMITHKLINE-A0560229A

PATIENT
  Age: 27 Year
  Sex: Male
  Weight: 129 kg

DRUGS (3)
  1. TUMS E-X TABLETS, ASSORTED BERRIES [Suspect]
     Indication: STOMACH DISCOMFORT
     Route: 048
     Dates: start: 20050515, end: 20050501
  2. TUMS REGULAR TABLETS, ASSORTED FRUIT [Suspect]
     Indication: DYSPEPSIA
     Route: 048
     Dates: end: 20050501
  3. EFFEXOR [Concomitant]

REACTIONS (11)
  - ABDOMINAL PAIN [None]
  - BLOOD CREATININE INCREASED [None]
  - CONDITION AGGRAVATED [None]
  - DRUG EFFECT DECREASED [None]
  - DUODENITIS [None]
  - GASTRIC DISORDER [None]
  - HYPERCALCAEMIA [None]
  - INTENTIONAL MISUSE [None]
  - MILK-ALKALI SYNDROME [None]
  - RENAL FAILURE ACUTE [None]
  - STOMACH DISCOMFORT [None]
